FAERS Safety Report 14351467 (Version 4)
Quarter: 2018Q1

REPORT INFORMATION
  Report Type: Spontaneous
  Country: US (occurrence: US)
  Receive Date: 20180104
  Receipt Date: 20180214
  Transmission Date: 20180509
  Serious: No
  Sender: FDA-Public Use
  Company Number: US-BIOGEN-2017BI00420850

PATIENT
  Age: 38 Year
  Sex: Male

DRUGS (10)
  1. AVONEX [Suspect]
     Active Substance: INTERFERON BETA-1A
     Route: 030
  2. AVONEX [Suspect]
     Active Substance: INTERFERON BETA-1A
     Route: 030
     Dates: start: 20170608, end: 20170614
  3. AVONEX [Suspect]
     Active Substance: INTERFERON BETA-1A
     Route: 030
     Dates: start: 20170615
  4. AVONEX [Suspect]
     Active Substance: INTERFERON BETA-1A
     Route: 030
     Dates: start: 20170525, end: 20170531
  5. AVONEX [Suspect]
     Active Substance: INTERFERON BETA-1A
     Route: 030
     Dates: start: 20170531
  6. AVONEX [Suspect]
     Active Substance: INTERFERON BETA-1A
     Route: 030
  7. AVONEX [Suspect]
     Active Substance: INTERFERON BETA-1A
     Route: 065
     Dates: start: 20170601, end: 20171227
  8. AVONEX [Suspect]
     Active Substance: INTERFERON BETA-1A
     Indication: MULTIPLE SCLEROSIS
     Route: 030
     Dates: start: 20170531
  9. AVONEX [Suspect]
     Active Substance: INTERFERON BETA-1A
     Route: 030
  10. AVONEX [Suspect]
     Active Substance: INTERFERON BETA-1A
     Route: 030
     Dates: start: 20170601, end: 20170607

REACTIONS (9)
  - Hypoaesthesia [Recovered/Resolved]
  - Drug ineffective [Unknown]
  - Cold sweat [Recovered/Resolved]
  - Gait inability [Recovered/Resolved]
  - Pyrexia [Recovered/Resolved]
  - Gait disturbance [Unknown]
  - Musculoskeletal disorder [Recovered/Resolved]
  - Balance disorder [Not Recovered/Not Resolved]
  - Muscular weakness [Unknown]

NARRATIVE: CASE EVENT DATE: 201706
